FAERS Safety Report 24172816 (Version 2)
Quarter: 2024Q4

REPORT INFORMATION
  Report Type: Spontaneous
  Country: DE (occurrence: DE)
  Receive Date: 20240805
  Receipt Date: 20241015
  Transmission Date: 20250115
  Serious: Yes (Death, Other)
  Sender: ACCORD
  Company Number: DE-VERTEX PHARMACEUTICALS-2024-010454

PATIENT
  Age: 70 Year
  Sex: Male

DRUGS (9)
  1. PIRFENIDONE [Suspect]
     Active Substance: PIRFENIDONE
     Indication: Idiopathic pulmonary fibrosis
  2. NINTEDANIB [Suspect]
     Active Substance: NINTEDANIB
     Indication: Idiopathic pulmonary fibrosis
     Dates: start: 202109
  3. ELEXACAFTOR\IVACAFTOR\TEZACAFTOR [Suspect]
     Active Substance: ELEXACAFTOR\IVACAFTOR\TEZACAFTOR
     Indication: Cystic fibrosis
     Dosage: ONCE IN AM (150 MG IVA/100 MG TEZA/200 MG ELEXA)
     Dates: start: 202109
  4. IVACAFTOR [Suspect]
     Active Substance: IVACAFTOR
     Indication: Cystic fibrosis
     Dosage: ONCE IN PM
     Dates: start: 202109
  5. LIOTHYRONINE [Concomitant]
     Active Substance: LIOTHYRONINE
  6. BECLOMETHASONE\FENOTEROL [Concomitant]
     Active Substance: BECLOMETHASONE\FENOTEROL
  7. FUROSEMIDE [Concomitant]
     Active Substance: FUROSEMIDE
  8. DORNASE ALFA [Concomitant]
     Active Substance: DORNASE ALFA
  9. MIRTAZAPINE [Concomitant]
     Active Substance: MIRTAZAPINE

REACTIONS (6)
  - Idiopathic pulmonary fibrosis [Fatal]
  - Gastrointestinal disorder [Unknown]
  - Diarrhoea [Recovered/Resolved]
  - Dyspepsia [Recovered/Resolved]
  - Abdominal distension [Recovered/Resolved]
  - Weight decreased [Recovered/Resolved]

NARRATIVE: CASE EVENT DATE: 20231018
